FAERS Safety Report 9093960 (Version 1)
Quarter: 2013Q1

REPORT INFORMATION
  Report Type: Spontaneous
  Country: US (occurrence: US)
  Receive Date: 20130131
  Receipt Date: 20130131
  Transmission Date: 20140127
  Serious: No
  Sender: FDA-Public Use
  Company Number: US-ABBOTT-12P-163-1010796-00

PATIENT
  Age: 35 None
  Sex: Female
  Weight: 52.21 kg

DRUGS (4)
  1. HUMIRA [Suspect]
     Indication: PSORIASIS
     Route: 058
     Dates: start: 201205
  2. TOPAMAX [Concomitant]
     Indication: HEMIPLEGIC MIGRAINE
  3. IMITREX [Concomitant]
     Indication: MIGRAINE
  4. CYCLOBENZAPRINE [Concomitant]
     Indication: INTERVERTEBRAL DISC PROTRUSION

REACTIONS (6)
  - Incorrect dose administered [Recovered/Resolved]
  - Injection site pain [Recovered/Resolved]
  - Injection site swelling [Recovered/Resolved]
  - Injection site haemorrhage [Recovered/Resolved]
  - Therapeutic response unexpected [Recovered/Resolved]
  - Therapeutic response unexpected [Recovered/Resolved]
